FAERS Safety Report 9908184 (Version 1)
Quarter: 2014Q1

REPORT INFORMATION
  Report Type: Spontaneous
  Country: US (occurrence: US)
  Receive Date: 20140219
  Receipt Date: 20140219
  Transmission Date: 20141002
  Serious: No
  Sender: FDA-Public Use
  Company Number: US-009507513-1402USA006788

PATIENT
  Age: 24 Year
  Sex: Female
  Weight: 120.18 kg

DRUGS (2)
  1. NEXPLANON [Suspect]
     Indication: CONTRACEPTION
     Dosage: 3 YEAR IMPLANT IN LEFT ARM
     Route: 059
     Dates: start: 20120316
  2. CELEXA [Concomitant]
     Indication: ANTIDEPRESSANT THERAPY

REACTIONS (3)
  - Amenorrhoea [Unknown]
  - Menstrual disorder [Unknown]
  - Menorrhagia [Unknown]
